FAERS Safety Report 9292481 (Version 1)
Quarter: 2013Q2

REPORT INFORMATION
  Report Type: Spontaneous
  Country: US (occurrence: US)
  Receive Date: 20130516
  Receipt Date: 20130516
  Transmission Date: 20140414
  Serious: Yes (Other)
  Sender: FDA-Public Use
  Company Number: US-PFIZER INC-2013146444

PATIENT
  Age: 74 Year
  Sex: Female
  Weight: 111 kg

DRUGS (3)
  1. REVATIO [Suspect]
     Indication: PULMONARY ARTERIAL HYPERTENSION
     Dosage: 20 MG, 2X/DAY
  2. PREDNISONE [Suspect]
     Indication: FOOD ALLERGY
     Dosage: UNK
     Dates: start: 201304, end: 2013
  3. METFORMIN [Concomitant]
     Indication: DIABETES MELLITUS
     Dosage: 500 MG, 3X/DAY

REACTIONS (3)
  - Food allergy [Unknown]
  - Cystitis [Unknown]
  - Blood glucose increased [Recovered/Resolved]
